FAERS Safety Report 15690612 (Version 3)
Quarter: 2019Q1

REPORT INFORMATION
  Report Type: Spontaneous
  Country: JP (occurrence: JP)
  Receive Date: 20181205
  Receipt Date: 20190109
  Transmission Date: 20190417
  Serious: Yes (Other)
  Sender: FDA-Public Use
  Company Number: JP-BAYER-2018-220839

PATIENT
  Age: 6 Decade
  Sex: Female

DRUGS (2)
  1. BAYASPIRIN 100 MG [Suspect]
     Active Substance: ASPIRIN
     Dosage: UNK
     Route: 048
  2. ATORVASTATIN [Concomitant]
     Active Substance: ATORVASTATIN

REACTIONS (6)
  - Muscular weakness [None]
  - Hypoaesthesia [None]
  - Vertebral artery aneurysm [None]
  - Feeling hot [None]
  - Vertebral artery aneurysm [None]
  - Grip strength decreased [None]

NARRATIVE: CASE EVENT DATE: 20100903
